FAERS Safety Report 13368704 (Version 1)
Quarter: 2017Q1

REPORT INFORMATION
  Report Type: Report from Study
  Country: DE (occurrence: DE)
  Receive Date: 20170324
  Receipt Date: 20170324
  Transmission Date: 20170429
  Serious: Yes (Hospitalization)
  Sender: FDA-Public Use
  Company Number: DE-TEVA-750992GER

PATIENT
  Sex: Male

DRUGS (13)
  1. PANTOPRAZOLE [Concomitant]
     Active Substance: PANTOPRAZOLE SODIUM
     Indication: PROPHYLAXIS AGAINST GASTROINTESTINAL ULCER
     Dosage: 40 MILLIGRAM DAILY;
     Route: 048
     Dates: start: 201510
  2. SULFAMETHOXAZOL/TRIMETHOPRIM [Concomitant]
     Active Substance: SULFAMETHOXAZOLE\TRIMETHOPRIM
     Indication: INFECTION PROPHYLAXIS
     Dosage: AT THE WEEKEND 1-0-1
     Route: 048
  3. DOXORUBICIN [Suspect]
     Active Substance: DOXORUBICIN
     Indication: B-CELL LYMPHOMA
     Dosage: 102 MG (1X IN 14 DAYS)
     Route: 042
     Dates: start: 20151009, end: 20151218
  4. VINCRISTINE [Suspect]
     Active Substance: VINCRISTINE
     Indication: B-CELL LYMPHOMA
     Dosage: 2 MG (1X IN 14 DAYS)
     Route: 042
     Dates: start: 20151009, end: 20151204
  5. RITUXIMAB [Suspect]
     Active Substance: RITUXIMAB
     Indication: B-CELL LYMPHOMA
     Dosage: LAST DOSE PRIOR PORT INF 12-FEB-2016 (758.9 MG 1X FOR 14 DAYS)
     Route: 042
     Dates: start: 20151001
  6. METHOTREXATE. [Suspect]
     Active Substance: METHOTREXATE
     Indication: B-CELL LYMPHOMA
     Dosage: 1.5 MG/M2 (1 IN 1 DAY)
     Route: 042
     Dates: start: 20151002, end: 20151002
  7. AMPHOTERICIN B. [Concomitant]
     Active Substance: AMPHOTERICIN B
     Indication: MUCOSITIS MANAGEMENT
     Route: 048
  8. FILGRASTIM [Suspect]
     Active Substance: FILGRASTIM
     Indication: B-CELL LYMPHOMA
     Dosage: 48 MIO IU PER 0,5 ML (1X IN 14 DAYS)
     Route: 058
     Dates: start: 20151014
  9. RITUXIMAB [Suspect]
     Active Substance: RITUXIMAB
     Dosage: 765 MG (1X IN 14 DAYS)
     Route: 042
  10. CYCLOPHOSPHAMIDE. [Suspect]
     Active Substance: CYCLOPHOSPHAMIDE
     Indication: B-CELL LYMPHOMA
     Dosage: 1530 MG (1 IN 14 DAYS)
     Route: 042
     Dates: start: 20151009, end: 20151218
  11. VINCRISTINE [Suspect]
     Active Substance: VINCRISTINE
     Dosage: 1 MG (1X IN 14 DAYS)
     Route: 042
     Dates: start: 20151120, end: 2015
  12. PREDNISOLONE. [Suspect]
     Active Substance: PREDNISOLONE
     Indication: B-CELL LYMPHOMA
     Dosage: 100 MG, 1X IN 14 DAYS
     Route: 048
     Dates: start: 20151009, end: 20151218
  13. ACICLOVIR [Concomitant]
     Active Substance: ACYCLOVIR
     Indication: INFECTION PROPHYLAXIS
     Dosage: 1200 MILLIGRAM DAILY;
     Route: 048
     Dates: start: 201510

REACTIONS (1)
  - Pneumonia [Recovered/Resolved]

NARRATIVE: CASE EVENT DATE: 20151227
